FAERS Safety Report 13541718 (Version 1)
Quarter: 2017Q2

REPORT INFORMATION
  Report Type: Spontaneous
  Country: IN (occurrence: IN)
  Receive Date: 20170512
  Receipt Date: 20170512
  Transmission Date: 20170830
  Serious: Yes (Other)
  Sender: FDA-Public Use
  Company Number: IN-DEPOMED, INC.-IN-2017DEP001024

PATIENT
  Age: 54 Year
  Sex: Male

DRUGS (10)
  1. DICLOFENAC [Concomitant]
     Active Substance: DICLOFENAC
     Indication: POSTOPERATIVE ANALGESIA
     Dosage: 75 MG, SINGLE
     Route: 042
  2. FENTANYL. [Suspect]
     Active Substance: FENTANYL
     Indication: MUSCULOSKELETAL PAIN
     Dosage: 160 ?G, SINGLE
     Route: 042
  3. GLYCOPYRROLATE                     /00196201/ [Concomitant]
     Active Substance: GLYCOPYRRONIUM
     Indication: GENERAL ANAESTHESIA
     Dosage: 0.2 MG, SINGLE
     Route: 042
  4. MIDAZOLAM [Concomitant]
     Active Substance: MIDAZOLAM HYDROCHLORIDE
     Indication: GENERAL ANAESTHESIA
     Dosage: 2 MG, SINGLE
     Route: 042
  5. NEOSTIGMINE [Concomitant]
     Active Substance: NEOSTIGMINE
     Indication: PARALYSIS
     Dosage: 2.5 MG, SINGLE
  6. PARACETAMOL [Concomitant]
     Active Substance: ACETAMINOPHEN
     Indication: POSTOPERATIVE ANALGESIA
     Dosage: 1 G, SINGLE
     Route: 042
  7. FENTANYL. [Suspect]
     Active Substance: FENTANYL
     Dosage: 200 MCG/20 ML NS AT 30 MCGM/HR
     Route: 042
  8. PROPOFOL. [Concomitant]
     Active Substance: PROPOFOL
     Indication: GENERAL ANAESTHESIA
     Dosage: 140 MG, SINGLE
     Route: 042
  9. FENTANYL. [Suspect]
     Active Substance: FENTANYL
     Indication: GENERAL ANAESTHESIA
     Dosage: 20 ?G, SINGLE BOLUS
     Route: 042
  10. GLYCOPYRROLATE                     /00196201/ [Concomitant]
     Active Substance: GLYCOPYRRONIUM
     Indication: PARALYSIS
     Dosage: 0.4 MG, SINGLE
     Route: 042

REACTIONS (3)
  - Muscle rigidity [Recovering/Resolving]
  - Hypoventilation [Recovered/Resolved]
  - Heart rate decreased [Recovering/Resolving]
